FAERS Safety Report 26194430 (Version 1)
Quarter: 2025Q4

REPORT INFORMATION
  Report Type: Spontaneous
  Country: TR (occurrence: TR)
  Receive Date: 20251224
  Receipt Date: 20251224
  Transmission Date: 20260118
  Serious: Yes (Death, Hospitalization, Other)
  Sender: ASTELLAS
  Company Number: TR-ASTELLAS-2025-AER-071092

PATIENT
  Age: 33 Year
  Sex: Male

DRUGS (11)
  1. XOSPATA [Suspect]
     Active Substance: GILTERITINIB
     Indication: FLT3 gene mutation
     Route: 065
     Dates: start: 202309
  2. XOSPATA [Suspect]
     Active Substance: GILTERITINIB
     Indication: Acute myeloid leukaemia
  3. TACROLIMUS [Suspect]
     Active Substance: TACROLIMUS
     Indication: Prophylaxis against transplant rejection
     Route: 065
     Dates: start: 202301
  4. TACROLIMUS [Suspect]
     Active Substance: TACROLIMUS
     Dosage: TACROLIMUS DOSAGE BEGAN TO BE TAPERED IN JUN-2023
     Route: 065
     Dates: start: 202306
  5. MYCOPHENOLATE MOFETIL [Concomitant]
     Active Substance: MYCOPHENOLATE MOFETIL
     Indication: Prophylaxis against transplant rejection
     Route: 065
     Dates: start: 202301
  6. AZACITIDINE [Concomitant]
     Active Substance: AZACITIDINE
     Indication: FLT3 gene mutation
     Route: 065
     Dates: start: 202308
  7. AZACITIDINE [Concomitant]
     Active Substance: AZACITIDINE
     Indication: Acute myeloid leukaemia
  8. VENETOCLAX [Concomitant]
     Active Substance: VENETOCLAX
     Indication: FLT3 gene mutation
     Route: 065
     Dates: start: 202308
  9. VENETOCLAX [Concomitant]
     Active Substance: VENETOCLAX
     Indication: Acute myeloid leukaemia
  10. LYMPHOCYTES [Concomitant]
     Active Substance: LYMPHOCYTES
     Indication: FLT3 gene mutation
     Route: 065
     Dates: start: 202308
  11. LYMPHOCYTES [Concomitant]
     Active Substance: LYMPHOCYTES
     Indication: Acute myeloid leukaemia

REACTIONS (5)
  - Bronchopulmonary aspergillosis [Fatal]
  - Acute myeloid leukaemia recurrent [Unknown]
  - Off label use [Unknown]
  - Off label use [Unknown]
  - Product use issue [Unknown]

NARRATIVE: CASE EVENT DATE: 20230101
